FAERS Safety Report 7078943-2 (Version None)
Quarter: 2010Q4

REPORT INFORMATION
  Report Type: 
  Country: None (occurrence: None)
  Receive Date: 20101102
  Receipt Date: 20101027
  Transmission Date: 20110411
  Serious: No
  Sender: FDA-Public Use
  Company Number: US-PFIZER INC-2008101263

PATIENT
  Sex: Male

DRUGS (2)
  1. VIAGRA [Suspect]
     Dosage: 100 MG, UNK
     Dates: start: 20100801
  2. VIAGRA [Suspect]
     Dosage: 50 MG, AS NEEDED
     Dates: start: 20100701

REACTIONS (1)
  - DRUG INEFFECTIVE [None]
